FAERS Safety Report 8091232-2 (Version None)
Quarter: 2012Q1

REPORT INFORMATION
  Report Type: 
  Country: None (occurrence: None)
  Receive Date: 20120129
  Receipt Date: 20110930
  Transmission Date: 20120608
  Serious: No
  Sender: FDA-Public Use
  Company Number: US-ABBOTT-11P-163-0859705-00

PATIENT
  Sex: Male

DRUGS (7)
  1. HUMIRA [Suspect]
     Dates: start: 20110929
  2. FOLIC ACID [Concomitant]
     Indication: VITAMIN SUPPLEMENTATION
  3. LASIX [Concomitant]
     Indication: PRODUCT USED FOR UNKNOWN INDICATION
  4. HUMIRA [Suspect]
     Indication: CROHN'S DISEASE
     Route: 058
     Dates: start: 20090101, end: 20110929
  5. IMURAN [Concomitant]
     Indication: CROHN'S DISEASE
     Dosage: NOT REPORTED.
  6. POTASSIUM [Concomitant]
     Indication: CROHN'S DISEASE
  7. MULTI-VITAMIN [Concomitant]
     Indication: VITAMIN SUPPLEMENTATION

REACTIONS (3)
  - DRUG INEFFECTIVE [None]
  - RECTAL DISCHARGE [None]
  - CROHN'S DISEASE [None]
